FAERS Safety Report 7941095-8 (Version None)
Quarter: 2011Q4

REPORT INFORMATION
  Report Type: 
  Country: None (occurrence: None)
  Receive Date: 20111114
  Receipt Date: 20110707
  Transmission Date: 20120403
  Serious: Yes (Hospitalization)
  Sender: FDA-Public Use
  Company Number: 2011S1000474

PATIENT
  Age: 40 Year
  Sex: Male
  Weight: 84 kg

DRUGS (1)
  1. CUBICIN [Suspect]
     Indication: CELLULITIS
     Dosage: 5.95 MG/KG; QD; IV
     Route: 042
     Dates: start: 20100928

REACTIONS (7)
  - TACHYCARDIA [None]
  - DIZZINESS [None]
  - CHEST DISCOMFORT [None]
  - BRADYCARDIA [None]
  - DYSPNOEA [None]
  - HYPERHIDROSIS [None]
  - OXYGEN SATURATION DECREASED [None]
